FAERS Safety Report 10038857 (Version 3)
Quarter: 2014Q2

REPORT INFORMATION
  Report Type: Spontaneous
  Country: US (occurrence: US)
  Receive Date: 20140326
  Receipt Date: 20140528
  Transmission Date: 20141212
  Serious: Yes (Other)
  Sender: FDA-Public Use
  Company Number: US-GLAXOSMITHKLINE-A1066761A

PATIENT
  Age: 59 Year
  Sex: Female

DRUGS (1)
  1. AMERGE [Suspect]
     Indication: MIGRAINE
     Dosage: 2.5MG UNKNOWN
     Route: 065
     Dates: start: 20081121

REACTIONS (3)
  - Scoliosis surgery [Unknown]
  - Scoliosis [Unknown]
  - Spinal deformity [Unknown]
